FAERS Safety Report 9412095 (Version 1)
Quarter: 2013Q3

REPORT INFORMATION
  Report Type: Spontaneous
  Country: US (occurrence: None)
  Receive Date: 20130719
  Receipt Date: 20130719
  Transmission Date: 20140515
  Serious: Yes (Hospitalization)
  Sender: FDA-Public Use
  Company Number: None

PATIENT
  Age: 63 Year
  Sex: Male
  Weight: 90 kg

DRUGS (1)
  1. RITUXIMAB [Suspect]
     Indication: IMMUNOGLOBULIN G4 RELATED SCLEROSING DISEASE
     Route: 042
     Dates: start: 20130711

REACTIONS (1)
  - Chest pain [None]
